FAERS Safety Report 5987174-6 (Version None)
Quarter: 2008Q4

REPORT INFORMATION
  Report Type: 
  Country: None (occurrence: None)
  Receive Date: 20081203
  Receipt Date: 20081118
  Transmission Date: 20090506
  Serious: Yes (Other)
  Sender: FDA-Public Use
  Company Number: 2008AL012009

PATIENT
  Age: 12 Year

DRUGS (2)
  1. DIAZEPAM TAB [Suspect]
  2. METHADONE HCL [Concomitant]

REACTIONS (3)
  - NYSTAGMUS [None]
  - POSTURE ABNORMAL [None]
  - STRABISMUS [None]
